FAERS Safety Report 5286406-X (Version None)
Quarter: 2007Q2

REPORT INFORMATION
  Report Type: 
  Country: None (occurrence: None)
  Receive Date: 20070404
  Receipt Date: 20070327
  Transmission Date: 20071010
  Serious: Yes (Death, Life-Threatening)
  Sender: FDA-Public Use
  Company Number: JP-BRISTOL-MYERS SQUIBB COMPANY-13704648

PATIENT
  Age: 73 Year
  Sex: Male

DRUGS (7)
  1. ARIPIPRAZOLE [Suspect]
     Indication: SCHIZOPHRENIA
     Route: 048
     Dates: start: 20070220, end: 20070224
  2. LORAZEPAM [Concomitant]
     Indication: SCHIZOPHRENIA
     Route: 048
     Dates: start: 20070220, end: 20070224
  3. NITRAZEPAM [Concomitant]
     Indication: SCHIZOPHRENIA
     Route: 048
     Dates: start: 20070220, end: 20070224
  4. TAMSULOSIN HCL [Concomitant]
     Indication: NEUROGENIC BLADDER
     Route: 048
     Dates: start: 20070222, end: 20070224
  5. TAMSULOSIN HCL [Concomitant]
     Indication: POLLAKIURIA
     Route: 048
     Dates: start: 20070222, end: 20070224
  6. HYPNOTICS NOS [Concomitant]
     Indication: INSOMNIA
  7. SEDATIVE [Concomitant]
     Indication: INSOMNIA

REACTIONS (3)
  - ASPIRATION [None]
  - CARDIAC FAILURE ACUTE [None]
  - PULMONARY EMBOLISM [None]
